FAERS Safety Report 14255544 (Version 1)
Quarter: 2017Q4

REPORT INFORMATION
  Report Type: Spontaneous
  Country: US (occurrence: None)
  Receive Date: 20171206
  Receipt Date: 20171206
  Transmission Date: 20180321
  Serious: Yes (Other)
  Sender: FDA-Public Use
  Company Number: None

PATIENT
  Age: 75 Year
  Sex: Male
  Weight: 87.09 kg

DRUGS (9)
  1. DEFIBULATOR IMPLANT [Concomitant]
  2. FOLIC ACID. [Concomitant]
     Active Substance: FOLIC ACID
  3. ATORVASTATIN [Concomitant]
     Active Substance: ATORVASTATIN
  4. VIAGRA [Concomitant]
     Active Substance: SILDENAFIL CITRATE
  5. PRADAXA [Concomitant]
     Active Substance: DABIGATRAN ETEXILATE MESYLATE
  6. TAMSULOSIN HCL [Suspect]
     Active Substance: TAMSULOSIN
     Indication: URINE FLOW DECREASED
     Route: 048
     Dates: start: 20171002, end: 20171006
  7. SOTALOL. [Concomitant]
     Active Substance: SOTALOL
  8. 1 A DAY MULTIVITAMIN [Concomitant]
  9. VITAMIN C [Concomitant]
     Active Substance: ASCORBIC ACID

REACTIONS (1)
  - Rash [None]

NARRATIVE: CASE EVENT DATE: 20171002
